FAERS Safety Report 4531375-0 (Version None)
Quarter: 2004Q4

REPORT INFORMATION
  Report Type: 
  Country: None (occurrence: None)
  Receive Date: 20041216
  Receipt Date: 20041130
  Transmission Date: 20050328
  Serious: Yes (Death, Hospitalization, Other)
  Sender: FDA-Public Use
  Company Number: USA040977089

PATIENT
  Age: 84 Year
  Sex: Male
  Weight: 122 kg

DRUGS (10)
  1. GEMZAR [Suspect]
     Indication: ABDOMINAL WALL NEOPLASM
     Dosage: 2 G
     Dates: start: 20040715
  2. GEMZAR [Suspect]
     Indication: ADENOCARCINOMA
     Dosage: 2 G
     Dates: start: 20040715
  3. PROTONIX [Concomitant]
  4. GLUCOTROL [Concomitant]
  5. AMARYL [Concomitant]
  6. ALLOPURIOL [Concomitant]
  7. CALCIUM [Concomitant]
  8. LOVENOX [Concomitant]
  9. COUMADIN [Concomitant]
  10. LASIX [Concomitant]

REACTIONS (9)
  - ABDOMINAL WALL NEOPLASM [None]
  - ADENOCARCINOMA [None]
  - BLOOD PRESSURE DECREASED [None]
  - CELLULITIS [None]
  - DEEP VEIN THROMBOSIS [None]
  - MALIGNANT NEOPLASM PROGRESSION [None]
  - OEDEMA PERIPHERAL [None]
  - PLATELET COUNT DECREASED [None]
  - TESTICULAR SWELLING [None]
